FAERS Safety Report 5928553-2 (Version None)
Quarter: 2008Q4

REPORT INFORMATION
  Report Type: 
  Country: None (occurrence: None)
  Receive Date: 20081023
  Receipt Date: 20081013
  Transmission Date: 20090506
  Serious: Yes (Hospitalization)
  Sender: FDA-Public Use
  Company Number: US-WATSON-2008-06093

PATIENT
  Age: 35 Year
  Sex: Female

DRUGS (3)
  1. LIDOCAINE HCL W/ EPINEPHRINE [Suspect]
     Indication: ANALGESIA
     Dosage: 5 CC 2%
     Dates: start: 20080101, end: 20080101
  2. EPHEDRINE HCL 1PC SOL [Suspect]
     Indication: HYPOTENSION
     Dosage: 10-15 MG
  3. PHENYLEPHRINE [Suspect]
     Indication: HYPOTENSION
     Dosage: 100 MCG

REACTIONS (2)
  - ARTERIOSPASM CORONARY [None]
  - STRESS CARDIOMYOPATHY [None]
